FAERS Safety Report 11426447 (Version 1)
Quarter: 2015Q3

REPORT INFORMATION
  Report Type: Spontaneous
  Country: US (occurrence: US)
  Receive Date: 20150821
  Receipt Date: 20150821
  Transmission Date: 20151125
  Serious: No
  Sender: FDA-Public Use
  Company Number: US-ELI_LILLY_AND_COMPANY-US201306008254

PATIENT
  Sex: Male

DRUGS (2)
  1. CIALIS [Suspect]
     Active Substance: TADALAFIL
     Indication: ERECTILE DYSFUNCTION
     Dosage: 20 MG, UNKNOWN
     Dates: start: 2005
  2. CIALIS [Suspect]
     Active Substance: TADALAFIL
     Dosage: 1 DF, UNKNOWN

REACTIONS (4)
  - Muscle spasms [Recovered/Resolved]
  - Wrong technique in product usage process [Unknown]
  - Back pain [Unknown]
  - Nasal congestion [Recovered/Resolved]

NARRATIVE: CASE EVENT DATE: 2010
